FAERS Safety Report 23399731 (Version 1)
Quarter: 2024Q1

REPORT INFORMATION
  Report Type: Spontaneous
  Country: US (occurrence: US)
  Receive Date: 20240114
  Receipt Date: 20240114
  Transmission Date: 20240409
  Serious: Yes (Hospitalization)
  Sender: FDA-Public Use
  Company Number: US-JNJFOC-20240119669

PATIENT
  Age: 4 Decade
  Sex: Male

DRUGS (2)
  1. RISPERDAL [Suspect]
     Active Substance: RISPERIDONE
     Indication: Thinking abnormal
     Dosage: IN VARYING DOSES OF 0.5 MG, 1 MG, 2 MG AND/OR 3 MG, AND IN VARYING FREQUENCIES OF EVERY MORNING AND/
     Route: 048
  2. RISPERDAL [Suspect]
     Active Substance: RISPERIDONE
     Indication: Psychotic disorder

REACTIONS (6)
  - Suicidal ideation [Recovered/Resolved]
  - Weight increased [Unknown]
  - Somnolence [Unknown]
  - Fatigue [Recovering/Resolving]
  - Sedation [Unknown]
  - Drug ineffective [Unknown]

NARRATIVE: CASE EVENT DATE: 20170101
